FAERS Safety Report 13851762 (Version 2)
Quarter: 2017Q3

REPORT INFORMATION
  Report Type: Spontaneous
  Country: US (occurrence: US)
  Receive Date: 20170810
  Receipt Date: 20170821
  Transmission Date: 20171127
  Serious: Yes (Hospitalization)
  Sender: FDA-Public Use
  Company Number: US-ORPHAN EUROPE-2024441

PATIENT
  Age: 25 Year
  Sex: Male

DRUGS (3)
  1. CYSTADANE [Suspect]
     Active Substance: BETAINE
     Route: 048
  2. CYSTADANE [Suspect]
     Active Substance: BETAINE
     Indication: VITAMIN B12 DEFICIENCY
     Route: 048
     Dates: end: 20170807
  3. HYDROXOCOBALAMIN [Concomitant]
     Active Substance: HYDROXOCOBALAMIN

REACTIONS (2)
  - Seizure [Not Recovered/Not Resolved]
  - Drug dose omission [Recovered/Resolved]

NARRATIVE: CASE EVENT DATE: 20170730
